FAERS Safety Report 23341608 (Version 1)
Quarter: 2023Q4

REPORT INFORMATION
  Report Type: Report from Study
  Country: US (occurrence: US)
  Receive Date: 20231227
  Receipt Date: 20231227
  Transmission Date: 20240110
  Serious: Yes (Life-Threatening, Hospitalization, Other)
  Sender: FDA-Public Use
  Company Number: US-GILEAD-2023-0651798

PATIENT
  Age: 51 Year
  Sex: Female
  Weight: 96 kg

DRUGS (20)
  1. SACITUZUMAB GOVITECAN-HZIY [Suspect]
     Active Substance: SACITUZUMAB GOVITECAN-HZIY
     Indication: Breast cancer stage IV
     Dosage: C1D1 AND D8
     Route: 065
     Dates: start: 20230911, end: 20230918
  2. ORSERDU [Concomitant]
     Active Substance: ELACESTRANT
     Dosage: 345MG DAILY
     Dates: start: 20231030
  3. ELIQUIS [Concomitant]
     Active Substance: APIXABAN
     Indication: Pulmonary embolism
  4. LEVOTHYROXINE [Concomitant]
     Active Substance: LEVOTHYROXINE
     Indication: Hypothyroidism
  5. TYLENOL [Concomitant]
     Active Substance: ACETAMINOPHEN
  6. PROAIR HFA [Concomitant]
     Active Substance: ALBUTEROL SULFATE
  7. PEPCID [Concomitant]
     Active Substance: FAMOTIDINE
  8. PROZAC [Concomitant]
     Active Substance: FLUOXETINE HYDROCHLORIDE
  9. FOLVITE [Concomitant]
     Active Substance: FOLIC ACID
  10. ROXICODONE [Concomitant]
     Active Substance: OXYCODONE HYDROCHLORIDE
     Indication: Pain
  11. CRESTOR [Concomitant]
     Active Substance: ROSUVASTATIN CALCIUM
  12. ZYRTEC [Concomitant]
     Active Substance: CETIRIZINE HYDROCHLORIDE
  13. PERIDEX [CHLORHEXIDINE GLUCONATE] [Concomitant]
  14. DECADRON [Concomitant]
     Active Substance: DEXAMETHASONE
  15. GLUCOPHAGE XR [Concomitant]
     Active Substance: METFORMIN HYDROCHLORIDE
  16. POTASSIUM CHLORIDE [Concomitant]
     Active Substance: POTASSIUM CHLORIDE
  17. INSULIN LISPRO [Concomitant]
     Active Substance: INSULIN LISPRO
  18. OXYCONTIN [Concomitant]
     Active Substance: OXYCODONE HYDROCHLORIDE
  19. PROTONIX [Concomitant]
     Active Substance: PANTOPRAZOLE SODIUM
  20. HEPARIN [Concomitant]
     Active Substance: HEPARIN SODIUM

REACTIONS (30)
  - Acute kidney injury [Recovered/Resolved]
  - Gastroenteritis [Unknown]
  - Sepsis [Unknown]
  - Febrile neutropenia [Unknown]
  - Leukopenia [Unknown]
  - Atrial fibrillation [Recovered/Resolved]
  - Urinary retention [Recovered/Resolved]
  - Encephalopathy [Recovered/Resolved]
  - Intracardiac mass [Unknown]
  - Hyperbilirubinaemia [Unknown]
  - Lower gastrointestinal haemorrhage [Recovered/Resolved]
  - Tubulointerstitial nephritis [Unknown]
  - Tachycardia [Recovered/Resolved]
  - Toxicity to various agents [Recovered/Resolved]
  - Vitamin D deficiency [Unknown]
  - Brain fog [Recovered/Resolved]
  - Haematuria [Unknown]
  - Diarrhoea [Unknown]
  - Abdominal pain upper [Unknown]
  - Urinary tract infection [Unknown]
  - Decreased appetite [Unknown]
  - Weight decreased [Unknown]
  - Fatigue [Unknown]
  - Nausea [Unknown]
  - Vomiting [Unknown]
  - Stomatitis [Recovering/Resolving]
  - Hypotension [Recovered/Resolved]
  - Anaemia [Unknown]
  - Hyponatraemia [Unknown]
  - Nasopharyngitis [Not Recovered/Not Resolved]

NARRATIVE: CASE EVENT DATE: 20230923
